FAERS Safety Report 7071087-5 (Version None)
Quarter: 2010Q4

REPORT INFORMATION
  Report Type: 
  Country: None (occurrence: None)
  Receive Date: 20101029
  Receipt Date: 20101021
  Transmission Date: 20110411
  Serious: Yes (Other)
  Sender: FDA-Public Use
  Company Number: US-PFIZER INC-2010134081

PATIENT

DRUGS (2)
  1. VIAGRA [Suspect]
     Dosage: UNK
  2. NITROGLYCERIN [Suspect]
     Dosage: UNK

REACTIONS (2)
  - HYPOTENSION [None]
  - MEDICATION ERROR [None]
